FAERS Safety Report 6685773-X (Version None)
Quarter: 2010Q2

REPORT INFORMATION
  Report Type: 
  Country: None (occurrence: None)
  Receive Date: 20100415
  Receipt Date: 20100415
  Transmission Date: 20101027
  Serious: Yes (Hospitalization)
  Sender: FDA-Public Use
  Company Number: None

PATIENT
  Age: 2 Year
  Sex: Female

DRUGS (5)
  1. GAMUNEX [Suspect]
     Indication: ACUTE MYELOID LEUKAEMIA
     Dosage: 7.5GM IV
     Route: 042
     Dates: start: 20080724, end: 20080724
  2. METHYLPREDNISOLONE [Suspect]
     Indication: PREMEDICATION
     Dosage: 20MG IV
     Route: 042
     Dates: start: 20080724, end: 20080724
  3. CYCLOSPORINE [Concomitant]
  4. FLUCONAZOLE [Concomitant]
  5. CO-TRIMAZOLE [Concomitant]

REACTIONS (1)
  - HYPERTENSION [None]
